FAERS Safety Report 15037559 (Version 1)
Quarter: 2018Q2

REPORT INFORMATION
  Report Type: Spontaneous
  Country: US (occurrence: US)
  Receive Date: 20180530
  Receipt Date: 20180530
  Transmission Date: 20180711
  Serious: Yes (Death)
  Sender: FDA-Public Use
  Company Number: None

PATIENT
  Age: 69 Year
  Sex: Female

DRUGS (9)
  1. TOBRAMYCIN. [Suspect]
     Active Substance: TOBRAMYCIN
     Dosage: IN NEBULIZER
     Dates: start: 20140823, end: 20180501
  2. PROAIR HFA [Concomitant]
     Active Substance: ALBUTEROL SULFATE
  3. ETHAMBUTOL [Concomitant]
     Active Substance: ETHAMBUTOL HYDROCHLORIDE
  4. VALSARTAN. [Concomitant]
     Active Substance: VALSARTAN
  5. VALSARTAN. [Suspect]
     Active Substance: VALSARTAN
  6. VANCOMYCIN [Concomitant]
     Active Substance: VANCOMYCIN
  7. LEVCOMYCIN [Concomitant]
  8. APAP/CODEINE [Concomitant]
     Active Substance: ACETAMINOPHEN\CODEINE PHOSPHATE
  9. SODIUM CHLORIDE. [Suspect]
     Active Substance: SODIUM CHLORIDE
     Dosage: IN NEBULIZIER
     Dates: start: 20170630, end: 20180501

REACTIONS (1)
  - Death [None]

NARRATIVE: CASE EVENT DATE: 20180501
